FAERS Safety Report 8566550 (Version 5)
Quarter: 2013Q1

REPORT INFORMATION
  Report Type: Spontaneous
  Country: DE (occurrence: DE)
  Receive Date: 20120517
  Receipt Date: 20130114
  Transmission Date: 20140127
  Serious: Yes (Life-Threatening, Hospitalization, Other)
  Sender: FDA-Public Use
  Company Number: DE-BAYER-2012-046092

PATIENT
  Sex: Female
  Weight: 61 kg

DRUGS (7)
  1. BETAFERON [Suspect]
     Indication: RELAPSING-REMITTING MULTIPLE SCLEROSIS
     Dosage: UNK
     Dates: start: 20060713
  2. METFORMIN [Concomitant]
     Indication: DIABETES MELLITUS
     Dosage: DAILY DOSE 500 MG
  3. PAROXETIN [Concomitant]
     Indication: ANXIETY DISORDER
     Dosage: DAILY DOSE 40 MG
  4. PAROXETIN [Concomitant]
     Indication: PANIC DISORDER
  5. LEVOTHYROXIN [Concomitant]
     Indication: HYPOTHYROIDISM
     Dosage: DAILY DOSE 75 ?G
  6. AMITRIPTYLINE [Concomitant]
     Indication: SLEEP DISORDER
     Dosage: DAILY DOSE 30 MG
  7. PANTOPRAZOLE [Concomitant]
     Indication: HYPERCHLORHYDRIA
     Dosage: DAILY DOSE 40 MG

REACTIONS (7)
  - Autoimmune haemolytic anaemia [Recovering/Resolving]
  - Iron deficiency [Recovering/Resolving]
  - Haemothorax [Recovering/Resolving]
  - Pneumonia [Recovering/Resolving]
  - Infectious pleural effusion [Recovering/Resolving]
  - Sepsis [Recovering/Resolving]
  - General physical health deterioration [Recovering/Resolving]
